FAERS Safety Report 16289331 (Version 3)
Quarter: 2019Q2

REPORT INFORMATION
  Report Type: Spontaneous
  Country: US (occurrence: US)
  Receive Date: 20190509
  Receipt Date: 20190618
  Transmission Date: 20190711
  Serious: No
  Sender: FDA-Public Use
  Company Number: US-GW PHARMA-201903USGW0631

PATIENT

DRUGS (1)
  1. EPIDIOLEX [Suspect]
     Active Substance: CANNABIDIOL
     Indication: TUBEROUS SCLEROSIS COMPLEX
     Dosage: 400 MILLIGRAM, BID
     Route: 048

REACTIONS (2)
  - Off label use [Unknown]
  - Constipation [Unknown]
